FAERS Safety Report 9122343 (Version 2)
Quarter: 2013Q1

REPORT INFORMATION
  Report Type: Spontaneous
  Country: GB (occurrence: GB)
  Receive Date: 20130130
  Receipt Date: 20130307
  Transmission Date: 20140127
  Serious: Yes (Other)
  Sender: FDA-Public Use
  Company Number: 2013SP000940

PATIENT
  Age: 46 Year
  Sex: Female

DRUGS (27)
  1. VANCOMYCIN [Suspect]
     Indication: PRODUCT USED FOR UNKNOWN INDICATION
     Dates: start: 20110904, end: 20110909
  2. CYTARABINE [Suspect]
     Indication: ACUTE MYELOID LEUKAEMIA
     Dates: start: 20110819, end: 20110828
  3. CYTARABINE [Suspect]
     Indication: MYELODYSPLASTIC SYNDROME
     Dates: start: 20110819, end: 20110828
  4. PIP/TAZO [Suspect]
     Indication: PRODUCT USED FOR UNKNOWN INDICATION
     Route: 042
     Dates: start: 20110822, end: 20110825
  5. MEROPENEM [Suspect]
     Indication: PRODUCT USED FOR UNKNOWN INDICATION
     Route: 042
     Dates: start: 20110905, end: 20110910
  6. GEMTUZUMAB OZOGAMICIN [Suspect]
     Indication: ACUTE MYELOID LEUKAEMIA
     Dates: start: 20110819, end: 20110828
  7. GEMTUZUMAB OZOGAMICIN [Suspect]
     Indication: MYELODYSPLASTIC SYNDROME
     Dates: start: 20110819, end: 20110828
  8. ETOPOSIDE [Suspect]
     Indication: ACUTE MYELOID LEUKAEMIA
     Dates: start: 20110819, end: 20110828
  9. ETOPOSIDE [Suspect]
     Indication: MYELODYSPLASTIC SYNDROME
     Dates: start: 20110819, end: 20110828
  10. DAUNORUBICIN [Suspect]
     Indication: ACUTE MYELOID LEUKAEMIA
     Dates: start: 20110819, end: 20110828
  11. DAUNORUBICIN [Suspect]
     Indication: MYELODYSPLASTIC SYNDROME
     Dates: start: 20110819, end: 20110828
  12. NORETHISTERONE [Suspect]
     Indication: PRODUCT USED FOR UNKNOWN INDICATION
     Dates: start: 20110818
  13. PHENOXYMETHYLPENICILLIN [Suspect]
     Indication: PRODUCT USED FOR UNKNOWN INDICATION
     Route: 042
     Dates: start: 20110905, end: 20110910
  14. AMPHOTERICIN B [Suspect]
     Indication: PRODUCT USED FOR UNKNOWN INDICATION
     Route: 042
     Dates: start: 20110831, end: 20110831
  15. RANITIDINE [Concomitant]
     Route: 048
     Dates: start: 20110908, end: 20110912
  16. OMEPRAZOLE [Concomitant]
     Route: 048
     Dates: start: 20110820, end: 20110908
  17. ALLOPURINOL [Concomitant]
     Route: 048
     Dates: start: 20110828, end: 20110908
  18. DOCUSATE SODIUM [Concomitant]
     Route: 048
     Dates: start: 20110823, end: 20110914
  19. CYCLIZINE [Concomitant]
     Route: 042
     Dates: start: 20110903, end: 20110914
  20. ACICLOVIR [Concomitant]
     Route: 048
  21. TRANEXAMIC ACID [Concomitant]
     Route: 048
     Dates: start: 20110831, end: 20110908
  22. ANTI-D IMMUNOGLOBULIN [Concomitant]
     Route: 058
     Dates: start: 20110902, end: 20110902
  23. LORAZEPAM [Concomitant]
     Route: 048
     Dates: start: 20110914, end: 20110914
  24. ONDANSETRON [Concomitant]
     Route: 048
     Dates: start: 20110822, end: 20110828
  25. PARACETAMOL [Concomitant]
     Route: 048
     Dates: start: 20110817, end: 20110828
  26. CODEINE [Concomitant]
     Route: 048
     Dates: start: 20110817, end: 20110820
  27. MORPHINE SULFATE [Concomitant]
     Route: 042
     Dates: start: 20110822, end: 20110823

REACTIONS (2)
  - Platelet count increased [Recovered/Resolved]
  - Alanine aminotransferase increased [Recovered/Resolved]
